FAERS Safety Report 7523178-X (Version None)
Quarter: 2011Q2

REPORT INFORMATION
  Report Type: 
  Country: None (occurrence: None)
  Receive Date: 20110525
  Receipt Date: 20110517
  Transmission Date: 20111010
  Serious: Yes (Life-Threatening, Other)
  Sender: FDA-Public Use
  Company Number: LIT2011A00105

PATIENT
  Age: 64 Year
  Sex: Male

DRUGS (4)
  1. PIOGLITAZONE HYDROCHLORIDE AND METFORMIN HYDROCHLORIDE [Suspect]
     Indication: TYPE 2 DIABETES MELLITUS
     Dosage: 2 TAB. (1 TAB.,2 IN 1 D) ORAL
     Route: 048
     Dates: start: 20101001, end: 20110429
  2. PIOGLITAZONE HYDROCHLORIDE AND METFORMIN HYDROCHLORIDE [Suspect]
     Indication: TYPE 2 DIABETES MELLITUS
     Dosage: 2 TAB. (1 TAB.,2 IN 1 D) ORAL
     Route: 048
     Dates: start: 20071117, end: 20080524
  3. AVANDAMET [Suspect]
     Indication: TYPE 2 DIABETES MELLITUS
     Dates: start: 20080524, end: 20100916
  4. AVANDAMET [Suspect]
     Indication: TYPE 2 DIABETES MELLITUS
     Dates: start: 20041211, end: 20071117

REACTIONS (2)
  - BLADDER CANCER [None]
  - HAEMATURIA [None]
